FAERS Safety Report 8899460 (Version 1)
Quarter: 2012Q4

REPORT INFORMATION
  Report Type: 
  Country: US (occurrence: US)
  Receive Date: 20121108
  Receipt Date: 20121108
  Transmission Date: 20130627
  Serious: No
  Sender: FDA-Public Use
  Company Number: US-AMGEN-USASP2012032703

PATIENT
  Age: 36 Year
  Sex: Female
  Weight: 126.98 kg

DRUGS (6)
  1. ENBREL [Suspect]
     Indication: PRODUCT USED FOR UNKNOWN INDICATION
     Dosage: 50 mg, qwk
     Route: 058
  2. CYMBALTA [Concomitant]
     Dosage: 20 mg, UNK
  3. PROTONIX [Concomitant]
     Dosage: 40 mg, UNK
  4. GEODON                             /01487002/ [Concomitant]
     Dosage: 80 mg, UNK
  5. VICOPROFEN [Concomitant]
  6. DOXYCYCLINE [Concomitant]
     Dosage: 20 mg, UNK

REACTIONS (3)
  - Pelvic pain [Unknown]
  - Abdominal pain [Unknown]
  - Pyrexia [Unknown]
